FAERS Safety Report 8488098-5 (Version None)
Quarter: 2012Q3

REPORT INFORMATION
  Report Type: 
  Country: None (occurrence: None)
  Receive Date: 20120705
  Receipt Date: 20120628
  Transmission Date: 20120928
  Serious: Yes (Death)
  Sender: FDA-Public Use
  Company Number: JP-PFIZER INC-2012147876

PATIENT
  Sex: Male

DRUGS (1)
  1. REVATIO [Suspect]
     Indication: PULMONARY HYPERTENSION
     Dosage: 40 MG, 1X/DAY
     Route: 048
     Dates: start: 20120301, end: 20120501

REACTIONS (2)
  - RESPIRATORY FAILURE [None]
  - PULMONARY HYPERTENSION [None]
